FAERS Safety Report 7396265-7 (Version None)
Quarter: 2011Q2

REPORT INFORMATION
  Report Type: 
  Country: None (occurrence: None)
  Receive Date: 20110406
  Receipt Date: 20110329
  Transmission Date: 20111010
  Serious: Yes (Hospitalization)
  Sender: FDA-Public Use
  Company Number: GB-US-EMD SERONO, INC.-7050690

PATIENT
  Sex: Female

DRUGS (1)
  1. SAIZEN [Suspect]
     Dates: start: 20080901

REACTIONS (1)
  - HOSPITALISATION [None]
